FAERS Safety Report 7655981-X (Version None)
Quarter: 2011Q3

REPORT INFORMATION
  Report Type: 
  Country: None (occurrence: None)
  Receive Date: 20110804
  Receipt Date: 20110729
  Transmission Date: 20111222
  Serious: Yes (Other)
  Sender: FDA-Public Use
  Company Number: TR-ROCHE-672707

PATIENT
  Sex: Female
  Weight: 64 kg

DRUGS (1)
  1. METHOXY POLYETHYLENE GLYCOL-EPOETIN BETA [Suspect]
     Dosage: PERMANENTLY DISCONTINUED, LAST DOSE PRIOR TO SAE: 2 NOV 2009, FORM: PFS
     Route: 058
     Dates: start: 20090905, end: 20091201

REACTIONS (1)
  - THROMBOCYTOSIS [None]
